FAERS Safety Report 7087941-4 (Version None)
Quarter: 2010Q4

REPORT INFORMATION
  Report Type: 
  Country: None (occurrence: None)
  Receive Date: 20101108
  Receipt Date: 20101026
  Transmission Date: 20110411
  Serious: Yes (Hospitalization)
  Sender: FDA-Public Use
  Company Number: BR-US-EMD SERONO, INC.-7024625

PATIENT
  Sex: Female

DRUGS (5)
  1. REBIF [Suspect]
     Indication: RELAPSING-REMITTING MULTIPLE SCLEROSIS
     Dates: start: 20011030
  2. ENALAPRIL MALEATE [Concomitant]
  3. TOPIRAMATE [Concomitant]
  4. SINVASTATINE [Concomitant]
  5. METFORMIN HCL [Concomitant]

REACTIONS (5)
  - CENTRAL NERVOUS SYSTEM LESION [None]
  - EXOSTOSIS [None]
  - INTERVERTEBRAL DISC SPACE NARROWING [None]
  - KYPHOSIS [None]
  - MULTIPLE SCLEROSIS RELAPSE [None]
